FAERS Safety Report 4503896-8 (Version None)
Quarter: 2004Q4

REPORT INFORMATION
  Report Type: 
  Country: None (occurrence: None)
  Receive Date: 20041115
  Receipt Date: 20041101
  Transmission Date: 20050328
  Serious: Yes (Hospitalization, Other)
  Sender: FDA-Public Use
  Company Number: 2004081874

PATIENT
  Age: 61 Year
  Sex: Male

DRUGS (7)
  1. LIPITOR [Suspect]
     Indication: HYPERLIPIDAEMIA
     Dosage: 10 MG (1 IN 1 D), ORAL
     Route: 048
     Dates: start: 20040909, end: 20041015
  2. PL. GRAN [Concomitant]
  3. LOXOPROFEN SODIUM             (LOXOPROFEN SODIUM) [Concomitant]
  4. MARZULENE S           (LEVOGLUTAMIDE, SODIUM GUALENATE) [Concomitant]
  5. LANSOPRAZOLE [Concomitant]
  6. CETRAXATE HYDROCHLORIDE                    (CETRAXATE HYDROCHLORIDE) [Concomitant]
  7. LACTOBACILLUS BIFIDUS,   LYOPHILIZED [Concomitant]

REACTIONS (15)
  - ALANINE AMINOTRANSFERASE INCREASED [None]
  - ASPARTATE AMINOTRANSFERASE INCREASED [None]
  - ASTHENIA [None]
  - BLOOD ALKALINE PHOSPHATASE INCREASED [None]
  - BLOOD LACTATE DEHYDROGENASE INCREASED [None]
  - CHROMATURIA [None]
  - DIALYSIS [None]
  - DISEASE RECURRENCE [None]
  - GAMMA-GLUTAMYLTRANSFERASE INCREASED [None]
  - GASTRODUODENAL ULCER [None]
  - JAUNDICE [None]
  - LIVER DISORDER [None]
  - MALAISE [None]
  - MYALGIA [None]
  - RED BLOOD CELL COUNT ABNORMAL [None]
